FAERS Safety Report 4844068-7 (Version None)
Quarter: 2005Q4

REPORT INFORMATION
  Report Type: 
  Country: None (occurrence: None)
  Receive Date: 20051202
  Receipt Date: 20051123
  Transmission Date: 20060501
  Serious: Yes (Death, Hospitalization)
  Sender: FDA-Public Use
  Company Number: AU-ROCHE-425962

PATIENT
  Age: 80 Year
  Sex: Male

DRUGS (9)
  1. NAPROSYN CR [Suspect]
     Indication: ARTHRITIS
     Route: 048
  2. BENZTROPINE MESYLATE [Concomitant]
  3. ZUCLOPENTHIXOL [Concomitant]
     Dosage: ZUCLOPENTHIXOL DEPOT.
  4. DIAZEPAM [Concomitant]
  5. QUININE [Concomitant]
  6. FERROUS [Concomitant]
  7. PARACETAMOL [Concomitant]
  8. PROPANTHELINE [Concomitant]
  9. TRAMADOL HCL [Concomitant]

REACTIONS (5)
  - ANAEMIA [None]
  - GASTRIC ULCER HAEMORRHAGE [None]
  - IRON DEFICIENCY [None]
  - MELAENA [None]
  - WEIGHT DECREASED [None]
